FAERS Safety Report 16056366 (Version 1)
Quarter: 2019Q1

REPORT INFORMATION
  Report Type: Report from Study
  Country: None (occurrence: ES)
  Receive Date: 20190311
  Receipt Date: 20190311
  Transmission Date: 20190418
  Serious: Yes (Life-Threatening, Hospitalization)
  Sender: FDA-Public Use
  Company Number: ES-ABBVIE-19S-144-2695301-00

PATIENT
  Sex: Male

DRUGS (1)
  1. DUODOPA [Suspect]
     Active Substance: CARBIDOPA\LEVODOPA
     Indication: PARKINSON^S DISEASE
     Route: 050
     Dates: start: 20131030

REACTIONS (7)
  - Dysphagia [Not Recovered/Not Resolved]
  - Disease progression [Unknown]
  - Device expulsion [Not Recovered/Not Resolved]
  - Off label use [Not Recovered/Not Resolved]
  - Aspiration [Recovered/Resolved]
  - Hypoxia [Recovered/Resolved]
  - Incorrect route of product administration [Not Recovered/Not Resolved]

NARRATIVE: CASE EVENT DATE: 2019
